FAERS Safety Report 13118869 (Version 1)
Quarter: 2017Q1

REPORT INFORMATION
  Report Type: Spontaneous
  Country: US (occurrence: US)
  Receive Date: 20170116
  Receipt Date: 20170116
  Transmission Date: 20170428
  Serious: Yes (Hospitalization)
  Sender: FDA-Public Use
  Company Number: US-SA-2016SA066856

PATIENT
  Age: 64 Year
  Sex: Male
  Weight: 83.1 kg

DRUGS (19)
  1. ACYCLOVIR. [Concomitant]
     Active Substance: ACYCLOVIR
     Route: 048
  2. AZITHROMYCIN ANHYDROUS. [Concomitant]
     Active Substance: AZITHROMYCIN ANHYDROUS
  3. ALPRAZOLAM. [Concomitant]
     Active Substance: ALPRAZOLAM
     Indication: INSOMNIA
     Dosage: ONCE A DAY AS NEEDED
  4. GABAPENTIN. [Concomitant]
     Active Substance: GABAPENTIN
  5. SENOKOT [Concomitant]
     Active Substance: SENNOSIDES
  6. TENOFOVIR [Concomitant]
     Active Substance: TENOFOVIR
  7. BIOTENE NOS [Concomitant]
     Active Substance: CETYLPYRIDINIUM CHLORIDE OR SODIUM FLUORIDE OR SODIUM MONOFLUOROPHOSPHATE OR GLUCOSE OXIDASE\LACTOFERRIN\LACTOPEROXIDASE BOVINE\LYSOZYME
     Dosage: MOUTHWAS ; SWISH AND SPIT EVERY 6 TIMES
  8. FAMOTIDINE. [Concomitant]
     Active Substance: FAMOTIDINE
  9. FOLIC ACID. [Concomitant]
     Active Substance: FOLIC ACID
  10. MELPHALAN [Suspect]
     Active Substance: MELPHALAN
     Route: 042
     Dates: start: 20160206
  11. TACROLIMUS. [Suspect]
     Active Substance: TACROLIMUS
     Dosage: 3 TABS IN MORNING 2 TABS IN EVENING
     Route: 065
  12. BACTRIM [Concomitant]
     Active Substance: SULFAMETHOXAZOLE\TRIMETHOPRIM
     Dosage: TWICE A DAY SATURDAY AND SUNDAY
     Route: 048
  13. CLOTRIMAZOLE. [Concomitant]
     Active Substance: CLOTRIMAZOLE
     Dosage: 1 LOZENGE SUCK 5 TIMES A DAY
  14. CLOFARABINE [Suspect]
     Active Substance: CLOFARABINE
     Indication: STEM CELL TRANSPLANT
     Route: 042
     Dates: start: 20160201, end: 20160205
  15. ROCEPHIN [Concomitant]
     Active Substance: CEFTRIAXONE SODIUM
  16. VIAGRA [Concomitant]
     Active Substance: SILDENAFIL CITRATE
  17. SIROLIMUS. [Suspect]
     Active Substance: SIROLIMUS
     Dosage: 3 TABS DAILY
     Route: 065
  18. XANAX [Concomitant]
     Active Substance: ALPRAZOLAM
     Dosage: ONCE
     Dates: start: 201603
  19. OXYCODONE [Concomitant]
     Active Substance: OXYCODONE
     Dosage: TWICE
     Dates: start: 201603

REACTIONS (11)
  - Hypoxia [Recovered/Resolved]
  - Dyspnoea [Recovered/Resolved]
  - Confusional state [Recovered/Resolved]
  - Musculoskeletal chest pain [Unknown]
  - Fall [Unknown]
  - Chest pain [Recovered/Resolved]
  - Disorientation [Recovered/Resolved]
  - Anaemia [Recovered/Resolved]
  - Pneumonia [Recovered/Resolved]
  - Dyspnoea [Unknown]
  - Hiccups [Recovered/Resolved]

NARRATIVE: CASE EVENT DATE: 2016
